FAERS Safety Report 16631728 (Version 1)
Quarter: 2019Q3

REPORT INFORMATION
  Report Type: Spontaneous
  Country: US (occurrence: US)
  Receive Date: 20190725
  Receipt Date: 20190725
  Transmission Date: 20191004
  Serious: Yes (Other)
  Sender: FDA-Public Use
  Company Number: US-PFIZER INC-2019314097

PATIENT
  Age: 38 Year
  Sex: Male
  Weight: 70.31 kg

DRUGS (1)
  1. LYRICA [Suspect]
     Active Substance: PREGABALIN
     Indication: SPINAL CORD DISORDER
     Dosage: 150 MG, 2X/DAY
     Route: 048

REACTIONS (1)
  - Systemic lupus erythematosus [Unknown]
